FAERS Safety Report 18653779 (Version 2)
Quarter: 2021Q1

REPORT INFORMATION
  Report Type: Spontaneous
  Country: US (occurrence: US)
  Receive Date: 20201223
  Receipt Date: 20210109
  Transmission Date: 20210419
  Serious: Yes (Life-Threatening, Hospitalization, Other)
  Sender: FDA-Public Use
  Company Number: US-AXELLIA-003600

PATIENT
  Age: 70 Year
  Sex: Female

DRUGS (3)
  1. CEFALEXIN [Concomitant]
     Active Substance: CEPHALEXIN
  2. CLINDAMYCIN. [Concomitant]
     Active Substance: CLINDAMYCIN
  3. VANCOMYCIN [Suspect]
     Active Substance: VANCOMYCIN
     Indication: ARTHRITIS INFECTIVE

REACTIONS (1)
  - Acute generalised exanthematous pustulosis [Recovered/Resolved]
